FAERS Safety Report 4673840-1 (Version None)
Quarter: 2005Q2

REPORT INFORMATION
  Report Type: 
  Country: None (occurrence: None)
  Receive Date: 20050524
  Receipt Date: 20050308
  Transmission Date: 20051028
  Serious: Yes (Hospitalization)
  Sender: FDA-Public Use
  Company Number: FR_050306000

PATIENT
  Age: 66 Year
  Sex: Female

DRUGS (11)
  1. ZYPREXA [Suspect]
     Indication: PSYCHOTIC DISORDER
     Dosage: 5 MG DAY
     Dates: start: 20030201, end: 20050226
  2. DEROXAT (PAROXETINE HYDROCHLORIDE) [Concomitant]
  3. ATARAX (ALPRAZOLAM DUM) [Concomitant]
  4. KARDEGIC (ACETYLSALICYLIC LYSINE) [Concomitant]
  5. VASTAREL (TRIMETAZIDINE HYDROCHLORIDE) [Concomitant]
  6. DI-ANTALVIC [Concomitant]
  7. CORDARONE [Concomitant]
  8. MOBIC [Concomitant]
  9. CACIT D3 [Concomitant]
  10. ZOLTUM (OMEPRAZOLE RATIOPHARM) [Concomitant]
  11. LACTULOSE [Concomitant]

REACTIONS (12)
  - AMNESIA [None]
  - ATHEROSCLEROSIS [None]
  - ATRIAL FIBRILLATION [None]
  - CARDIAC DISORDER [None]
  - CHOLELITHIASIS [None]
  - ELECTROCARDIOGRAM ABNORMAL [None]
  - FACIAL PALSY [None]
  - HEPATOMEGALY [None]
  - HYPOTONIA [None]
  - ISCHAEMIA [None]
  - TRANSIENT ISCHAEMIC ATTACK [None]
  - VENTRICULAR HYPERTROPHY [None]
